FAERS Safety Report 14384382 (Version 2)
Quarter: 2018Q2

REPORT INFORMATION
  Report Type: Spontaneous
  Country: US (occurrence: US)
  Receive Date: 20180115
  Receipt Date: 20180427
  Transmission Date: 20180711
  Serious: No
  Sender: FDA-Public Use
  Company Number: US-PFIZER INC-2018017512

PATIENT
  Age: 11 Year
  Sex: Male

DRUGS (1)
  1. QUILLIVANT XR [Suspect]
     Active Substance: METHYLPHENIDATE HYDROCHLORIDE
     Indication: ATTENTION DEFICIT/HYPERACTIVITY DISORDER
     Dosage: 10 ML, DAILY (8 ML IN THE MORNING AND 2ML IN THE AFTERNOON)
     Route: 048

REACTIONS (3)
  - Poor quality drug administered [Unknown]
  - Product taste abnormal [Unknown]
  - Drug effect incomplete [Unknown]
